FAERS Safety Report 25006201 (Version 2)
Quarter: 2025Q2

REPORT INFORMATION
  Report Type: Spontaneous
  Country: US (occurrence: US)
  Receive Date: 20250224
  Receipt Date: 20250410
  Transmission Date: 20250717
  Serious: Yes (Other)
  Sender: BIOMARIN
  Company Number: US-BIOMARINAP-US-2025-164089

PATIENT

DRUGS (1)
  1. VOXZOGO [Suspect]
     Active Substance: VOSORITIDE
     Indication: Osteochondrodysplasia
     Dosage: 0.2 MILLIGRAM, QD
     Route: 058
     Dates: start: 20241016

REACTIONS (4)
  - Foramen magnum stenosis [Recovered/Resolved]
  - Cerebrospinal fluid circulation disorder [Recovered/Resolved]
  - Obstructive sleep apnoea syndrome [Recovered/Resolved]
  - Central sleep apnoea syndrome [Recovered/Resolved]
